FAERS Safety Report 15751177 (Version 1)
Quarter: 2018Q4

REPORT INFORMATION
  Report Type: Spontaneous
  Country: US (occurrence: US)
  Receive Date: 20181206
  Receipt Date: 20181206
  Transmission Date: 20190205
  Serious: No
  Sender: FDA-Public Use
  Company Number: None

PATIENT
  Age: 10 Month
  Sex: Female

DRUGS (2)
  1. IBUPROPHEN [Suspect]
     Active Substance: IBUPROFEN
     Indication: PYREXIA
     Route: 048
  2. IBUPROPHEN [Suspect]
     Active Substance: IBUPROFEN
     Indication: TEETHING
     Route: 048

REACTIONS (3)
  - Dermatitis diaper [None]
  - Diarrhoea [None]
  - Recalled product [None]

NARRATIVE: CASE EVENT DATE: 20181201
